FAERS Safety Report 4559853-9 (Version None)
Quarter: 2005Q1

REPORT INFORMATION
  Report Type: 
  Country: None (occurrence: None)
  Receive Date: 20050107
  Receipt Date: 20040405
  Transmission Date: 20050727
  Serious: Yes (Hospitalization)
  Sender: FDA-Public Use
  Company Number: 04P-163-0255926-00

PATIENT
  Age: 2 Month
  Sex: Male

DRUGS (1)
  1. OMNICEF [Suspect]
     Indication: OTITIS MEDIA
     Dosage: 4 ML, 1 IN 1 D, PER ORAL
     Route: 048
     Dates: start: 20040329, end: 20040404

REACTIONS (1)
  - FAECES DISCOLOURED [None]
